FAERS Safety Report 7909147-6 (Version None)
Quarter: 2011Q4

REPORT INFORMATION
  Report Type: 
  Country: None (occurrence: None)
  Receive Date: 20111111
  Receipt Date: 20101216
  Transmission Date: 20120403
  Serious: No
  Sender: FDA-Public Use
  Company Number: US-GLAXOSMITHKLINE-A0900176A

PATIENT
  Age: 87 Year
  Sex: Female

DRUGS (3)
  1. PLAVIX [Concomitant]
  2. ASPIRIN [Concomitant]
  3. CARVEDILOL [Suspect]
     Indication: CORONARY ARTERIAL STENT INSERTION
     Dosage: 6.25MG THREE TIMES PER DAY
     Route: 048

REACTIONS (3)
  - BALANCE DISORDER [None]
  - COUGH [None]
  - DIZZINESS [None]
